FAERS Safety Report 8421502-7 (Version None)
Quarter: 2012Q2

REPORT INFORMATION
  Report Type: 
  Country: None (occurrence: None)
  Receive Date: 20120601
  Receipt Date: 20120518
  Transmission Date: 20120825
  Serious: Yes (Death)
  Sender: FDA-Public Use
  Company Number: UTC-019136

PATIENT
  Age: 71 Year
  Sex: Female
  Weight: 90.9 kg

DRUGS (4)
  1. REVATIO [Concomitant]
  2. TYVASO [Suspect]
     Indication: HYPERTENSION
     Dosage: 216 MCG (54 MCG, 4 IN 1 D), INHALATION
     Route: 055
     Dates: start: 20091013
  3. LETAIRIS [Concomitant]
  4. DIURETICS (DIURETICS) [Concomitant]

REACTIONS (1)
  - DEATH [None]
